FAERS Safety Report 9017617 (Version 2)
Quarter: 2013Q1

REPORT INFORMATION
  Report Type: Spontaneous
  Country: DE (occurrence: DE)
  Receive Date: 20130117
  Receipt Date: 20130204
  Transmission Date: 20140127
  Serious: Yes (Death, Life-Threatening)
  Sender: FDA-Public Use
  Company Number: DE-B.I. PHARMACEUTICALS,INC./RIDGEFIELD-2013-DE-00086DE

PATIENT
  Age: 76 Year
  Sex: Male

DRUGS (6)
  1. PRADAXA [Suspect]
     Indication: ATRIAL FIBRILLATION
     Dosage: 110 MG
  2. RAMIPRIL HCT [Concomitant]
     Indication: HYPERTENSION
     Dosage: 5 NR
  3. NITRENDIPIN [Concomitant]
     Indication: HYPERTENSION
     Dosage: 10 NR
  4. BISOLMED 5 [Concomitant]
     Dosage: 1.25 NR
  5. ALLOPURINOL [Concomitant]
     Dosage: 150 NR
  6. KALINOR [Concomitant]
     Dosage: 1 ANZ

REACTIONS (3)
  - Acute myocardial infarction [Fatal]
  - Coronary artery disease [Fatal]
  - Aneurysm ruptured [Fatal]
